FAERS Safety Report 10286002 (Version 1)
Quarter: 2014Q3

REPORT INFORMATION
  Report Type: Spontaneous
  Country: US (occurrence: US)
  Receive Date: 20140709
  Receipt Date: 20140709
  Transmission Date: 20150326
  Serious: Yes (Other)
  Sender: FDA-Public Use
  Company Number: US-ROCHE-1431222

PATIENT
  Age: 66 Year
  Sex: Female

DRUGS (1)
  1. XOLAIR [Suspect]
     Active Substance: OMALIZUMAB
     Indication: ASTHMA
     Route: 058
     Dates: start: 20140620

REACTIONS (5)
  - Device malfunction [Unknown]
  - Upper respiratory tract infection [Recovered/Resolved]
  - Fatigue [Recovered/Resolved]
  - Chronic obstructive pulmonary disease [Recovered/Resolved]
  - Swelling face [Recovered/Resolved]

NARRATIVE: CASE EVENT DATE: 20140620
